FAERS Safety Report 17449026 (Version 1)
Quarter: 2020Q1

REPORT INFORMATION
  Report Type: Spontaneous
  Country: US (occurrence: US)
  Receive Date: 20200224
  Receipt Date: 20200224
  Transmission Date: 20200409
  Serious: Yes (Other)
  Sender: FDA-Public Use
  Company Number: US-TEVA-2020-US-1190325

PATIENT
  Age: 68 Year
  Sex: Female

DRUGS (5)
  1. COTRIMOXAZOLE [Suspect]
     Active Substance: SULFAMETHOXAZOLE\TRIMETHOPRIM
     Indication: TOXOPLASMOSIS
     Route: 065
  2. LEUCOVORIN. [Concomitant]
     Active Substance: LEUCOVORIN
     Route: 065
  3. PYRIMETHAMINE [Concomitant]
     Active Substance: PYRIMETHAMINE
     Indication: TOXOPLASMOSIS
     Route: 065
  4. ATOVAQUONE. [Suspect]
     Active Substance: ATOVAQUONE
     Indication: TOXOPLASMOSIS PROPHYLAXIS
     Route: 065
  5. SULFADIAZINE. [Concomitant]
     Active Substance: SULFADIAZINE
     Indication: TOXOPLASMOSIS
     Route: 065

REACTIONS (2)
  - Pancytopenia [Unknown]
  - Treatment failure [Unknown]
